FAERS Safety Report 19841868 (Version 1)
Quarter: 2021Q3

REPORT INFORMATION
  Report Type: Spontaneous
  Country: US (occurrence: US)
  Receive Date: 20210916
  Receipt Date: 20210916
  Transmission Date: 20211014
  Serious: No
  Sender: FDA-Public Use
  Company Number: US-BAYER-2021-210835

PATIENT
  Sex: Female

DRUGS (1)
  1. SKYLA [Suspect]
     Active Substance: LEVONORGESTREL
     Dosage: 14 ?G, CONT
     Route: 015
     Dates: start: 20210910

REACTIONS (1)
  - Expired device used [None]

NARRATIVE: CASE EVENT DATE: 20210910
